FAERS Safety Report 21502746 (Version 2)
Quarter: 2022Q4

REPORT INFORMATION
  Report Type: Spontaneous
  Country: JP (occurrence: JP)
  Receive Date: 20221025
  Receipt Date: 20221103
  Transmission Date: 20230113
  Serious: Yes (Death, Other)
  Sender: FDA-Public Use
  Company Number: JP-MSD-M2022-44612

PATIENT
  Age: 80 Year
  Sex: Male

DRUGS (15)
  1. LAGEVRIO [Suspect]
     Active Substance: MOLNUPIRAVIR
     Indication: COVID-19 treatment
     Dosage: 800 MILLIGRAM, BID
     Route: 048
     Dates: start: 20221001, end: 20221005
  2. AMLODIPINE BESYLATE [Concomitant]
     Active Substance: AMLODIPINE BESYLATE
     Dosage: 0.5 DOSAGE FORM, QD, MORNING
     Route: 048
  3. ENALAPRIL MALEATE [Concomitant]
     Active Substance: ENALAPRIL MALEATE
     Dosage: 1 DOSAGE FORM, QD, MORNING
     Route: 048
  4. BISOPROLOL FUMARATE [Concomitant]
     Active Substance: BISOPROLOL FUMARATE
     Dosage: 0.25 DOSAGE FORM, QD, MORNING
     Route: 048
  5. CLOPIDOGREL BISULFATE [Concomitant]
     Active Substance: CLOPIDOGREL BISULFATE
     Dosage: 1 DOSAGE FORM, QD, MORNING
     Route: 048
  6. JANUVIA [Concomitant]
     Active Substance: SITAGLIPTIN PHOSPHATE
     Dosage: 50 MILLIGRAM, QD, MORNING
     Route: 048
  7. LANSOPRAZOLE [Concomitant]
     Active Substance: LANSOPRAZOLE
     Dosage: 1 DOSAGE FORM, QD, EVENING
     Route: 048
  8. REXULTI [Concomitant]
     Active Substance: BREXPIPRAZOLE
     Dosage: 0.5 DOSAGE FORM, QD, EVENING
     Route: 048
  9. MAGNESIUM OXIDE [Concomitant]
     Active Substance: MAGNESIUM OXIDE
     Dosage: 1 DOSAGE FORM, BID, MORNING AND EVENING
     Route: 048
  10. SOFALCONE [Concomitant]
     Active Substance: SOFALCONE
     Dosage: 1 DOSAGE FORM, TID, MORNING, NOON, AND EVENING
     Route: 048
  11. HERBALS [Concomitant]
     Active Substance: HERBALS
     Dosage: 2.5 GRAM, TID, MORNING, NOON, AND EVENING
     Route: 065
  12. DAYVIGO [Concomitant]
     Active Substance: LEMBOREXANT
     Dosage: 1 DOSAGE FORM, QD, BED TIME
     Route: 048
  13. AZOPT [BRINZOLAMIDE] [Concomitant]
     Dosage: 1 PERCENT, BID, MORNING AND EVENING
     Route: 047
  14. TIMOLOL [TIMOLOL MALEATE] [Concomitant]
     Dosage: 0.5 PERCENT, BID, MORNING AND EVENING
     Route: 047
  15. ANHIBA [Concomitant]
     Active Substance: ACETAMINOPHEN
     Dosage: 200 MILLIGRAM, ONCE
     Route: 054

REACTIONS (1)
  - Pneumonia aspiration [Fatal]

NARRATIVE: CASE EVENT DATE: 20221016
